FAERS Safety Report 9109874 (Version 2)
Quarter: 2013Q1

REPORT INFORMATION
  Report Type: Report from Study
  Country: JP (occurrence: JP)
  Receive Date: 20130222
  Receipt Date: 20130314
  Transmission Date: 20140127
  Serious: Yes (Hospitalization)
  Sender: FDA-Public Use
  Company Number: JP-ACTELION-A-CH2012-67331

PATIENT
  Age: 78 Year
  Sex: Female

DRUGS (8)
  1. TRACLEER [Suspect]
     Indication: PULMONARY HYPERTENSION
     Dosage: 62.5 MG, QD
     Route: 048
     Dates: start: 20120112
  2. TRACLEER [Suspect]
     Dosage: 62.5 MG, BID
     Route: 048
     Dates: start: 20111220, end: 20120111
  3. BERAPROST SODIUM [Concomitant]
  4. WARFARIN POTASSIUM [Concomitant]
  5. AMBROXOL HYDROCHLORIDE [Concomitant]
  6. ETIZOLAM [Concomitant]
  7. FAMOTIDINE [Concomitant]
  8. OXYGEN [Concomitant]

REACTIONS (6)
  - Right ventricular failure [Recovered/Resolved]
  - Concomitant disease aggravated [Recovered/Resolved]
  - Brain natriuretic peptide increased [Recovered/Resolved]
  - Hepatic function abnormal [Recovering/Resolving]
  - Aspartate aminotransferase increased [Recovering/Resolving]
  - Alanine aminotransferase increased [Recovering/Resolving]
